FAERS Safety Report 11422396 (Version 5)
Quarter: 2016Q1

REPORT INFORMATION
  Report Type: Spontaneous
  Country: US (occurrence: US)
  Receive Date: 20150827
  Receipt Date: 20160329
  Transmission Date: 20160525
  Serious: Yes (Other)
  Sender: FDA-Public Use
  Company Number: US-PFIZER INC-2015282231

PATIENT
  Age: 49 Year
  Sex: Female
  Weight: 70 kg

DRUGS (13)
  1. EFFEXOR XR [Suspect]
     Active Substance: VENLAFAXINE HYDROCHLORIDE
     Indication: DEPRESSION
     Dosage: 150 MG, 2X/DAY
     Route: 048
     Dates: start: 2005, end: 201510
  2. TRAZODONE [Concomitant]
     Active Substance: TRAZODONE HYDROCHLORIDE
     Dosage: UNK
     Dates: start: 201507
  3. LEVOTHYROXINE. [Concomitant]
     Active Substance: LEVOTHYROXINE
     Dosage: UNK
  4. EFFEXOR XR [Suspect]
     Active Substance: VENLAFAXINE HYDROCHLORIDE
     Indication: ANXIETY DISORDER
  5. TRAZODONE [Concomitant]
     Active Substance: TRAZODONE HYDROCHLORIDE
     Indication: SLEEP DISORDER
     Dosage: 150 MG, 1X/DAY (AT BEDTIME)
     Dates: start: 2008
  6. CLONAZEPAM. [Concomitant]
     Active Substance: CLONAZEPAM
     Indication: GENERALISED ANXIETY DISORDER
     Dosage: 1 MG, 2X/DAY
     Dates: start: 2007
  7. BUSPAR [Concomitant]
     Active Substance: BUSPIRONE HYDROCHLORIDE
     Dosage: UNK
     Dates: start: 1998, end: 2006
  8. LEVOXYL [Concomitant]
     Active Substance: LEVOTHYROXINE SODIUM
     Dosage: UNK
     Dates: start: 2000
  9. SIMVASTATIN. [Concomitant]
     Active Substance: SIMVASTATIN
     Dosage: UNK
     Dates: start: 2005
  10. VENLAFAXINE HCL [Suspect]
     Active Substance: VENLAFAXINE HYDROCHLORIDE
     Indication: MAJOR DEPRESSION
     Dosage: 150 MG, 2X/DAY
     Dates: start: 2010, end: 2011
  11. SIMVASTATIN. [Concomitant]
     Active Substance: SIMVASTATIN
     Dosage: UNK
     Dates: start: 1996
  12. KLONOPIN [Concomitant]
     Active Substance: CLONAZEPAM
     Indication: GENERALISED ANXIETY DISORDER
     Dosage: 1 MG, 2X/DAY
     Dates: start: 2007
  13. KLONOPIN [Concomitant]
     Active Substance: CLONAZEPAM
     Dosage: 0.5MG IN THE MORNING AND EVENING AND 1MG AT NIGHT.
     Dates: start: 2008

REACTIONS (29)
  - Hypoaesthesia [Recovered/Resolved]
  - Hypersomnia [Not Recovered/Not Resolved]
  - Muscle disorder [Unknown]
  - Mental impairment [Recovering/Resolving]
  - Anxiety [Recovered/Resolved]
  - Feeling abnormal [Recovering/Resolving]
  - Impulse-control disorder [Recovered/Resolved]
  - Cognitive disorder [Unknown]
  - Drug dose omission [Not Recovered/Not Resolved]
  - Hypoaesthesia oral [Recovered/Resolved]
  - Intentional product misuse [Unknown]
  - Psychomotor skills impaired [Unknown]
  - Memory impairment [Recovering/Resolving]
  - Personality change [Recovering/Resolving]
  - Anger [Not Recovered/Not Resolved]
  - Loss of employment [Not Recovered/Not Resolved]
  - Activities of daily living impaired [Recovering/Resolving]
  - Abnormal behaviour [Recovering/Resolving]
  - Fatigue [Not Recovered/Not Resolved]
  - Paraesthesia [Recovered/Resolved]
  - Dizziness [Not Recovered/Not Resolved]
  - Sensory disturbance [Not Recovered/Not Resolved]
  - Psychiatric symptom [Unknown]
  - Frustration tolerance decreased [Not Recovered/Not Resolved]
  - Social problem [Unknown]
  - Drug withdrawal syndrome [Unknown]
  - Malaise [Unknown]
  - Prescribed overdose [Not Recovered/Not Resolved]
  - Condition aggravated [Recovered/Resolved]

NARRATIVE: CASE EVENT DATE: 2005
